FAERS Safety Report 6809815-3 (Version None)
Quarter: 2010Q2

REPORT INFORMATION
  Report Type: 
  Country: None (occurrence: None)
  Receive Date: 20100630
  Receipt Date: 20100622
  Transmission Date: 20101027
  Serious: Yes (Hospitalization)
  Sender: FDA-Public Use
  Company Number: ES-JNJFOC-20100606526

PATIENT
  Age: 85 Year
  Sex: Male

DRUGS (6)
  1. TAVANIC [Suspect]
     Indication: PNEUMONIA
     Route: 048
  2. SINTROM [Interacting]
     Indication: ATRIAL FIBRILLATION
     Route: 048
  3. OMEPRAZOLE [Concomitant]
     Route: 065
  4. ACTONEL [Concomitant]
     Route: 065
  5. DIAMICRON [Concomitant]
     Route: 065
  6. PLANTABEN [Concomitant]
     Route: 065

REACTIONS (2)
  - DRUG INTERACTION [None]
  - RETROPERITONEAL HAEMATOMA [None]
